FAERS Safety Report 21230453 (Version 1)
Quarter: 2022Q3

REPORT INFORMATION
  Report Type: Spontaneous
  Country: FR (occurrence: FR)
  Receive Date: 20220818
  Receipt Date: 20220818
  Transmission Date: 20221027
  Serious: Yes (Hospitalization)
  Sender: FDA-Public Use
  Company Number: None

PATIENT
  Age: 56 Year
  Sex: Female

DRUGS (5)
  1. CARBOPLATIN [Suspect]
     Active Substance: CARBOPLATIN
     Indication: Triple negative breast cancer
     Dosage: 2MG/ML/MIN *2/ 3 WEEKS , UNIT DOSE : 4 MG , FREQUENCY TIME :  3 WEEKS , DURATION : 1 DAY
     Dates: start: 20220722, end: 20220722
  2. KEYTRUDA [Suspect]
     Active Substance: PEMBROLIZUMAB
     Indication: Triple negative breast cancer
     Dosage: FORM STRENGTH : 25 MG/ML, UNIT DOSE : 200 MG , FREQUENCY TIME : 3 WEEKS  , DURATION : 1 DAYS
     Dates: start: 20220722, end: 20220722
  3. AUGMENTIN [Suspect]
     Active Substance: AMOXICILLIN\CLAVULANATE POTASSIUM
     Indication: Lung disorder
     Dosage: 3 DOSAGE FORMS DAILY; 1DF *3/ D , 1 G/125 MG ADULTS, POWDER FOR ORAL SUSPENSION IN SACHET-DOSE (AMOX
     Dates: start: 20220717, end: 20220722
  4. PAXLOVID [Suspect]
     Active Substance: NIRMATRELVIR\RITONAVIR
     Indication: Product used for unknown indication
     Dosage: 2 DOSAGE FORMS DAILY; 1DF *2/D , 150MG + 100MG , UNIT DOSE :2 DF  , FREQUENCY TIME : 1 DAY  , DURATI
     Dates: start: 20220728, end: 20220801
  5. GEMCITABINE [Suspect]
     Active Substance: GEMCITABINE
     Indication: Triple negative breast cancer
     Dosage: UNIT DOSE : 2000 MG/M2 , FREQUENCY TIME :3 WEEKS    , DURATION : 1 DAY
     Dates: start: 20220722, end: 20220722

REACTIONS (1)
  - Rash maculo-papular [Not Recovered/Not Resolved]

NARRATIVE: CASE EVENT DATE: 20220730
